FAERS Safety Report 7936994-7 (Version None)
Quarter: 2011Q4

REPORT INFORMATION
  Report Type: 
  Country: None (occurrence: None)
  Receive Date: 20111123
  Receipt Date: 20111111
  Transmission Date: 20120403
  Serious: Yes (Other)
  Sender: FDA-Public Use
  Company Number: JP-SANOFI-AVENTIS-2011SA075961

PATIENT

DRUGS (2)
  1. LASIX [Suspect]
     Route: 065
  2. METHOTREXATE [Interacting]
     Route: 065

REACTIONS (3)
  - RENAL DISORDER [None]
  - DRUG LEVEL INCREASED [None]
  - DRUG INTERACTION [None]
